FAERS Safety Report 6772846-6 (Version None)
Quarter: 2010Q2

REPORT INFORMATION
  Report Type: 
  Country: None (occurrence: None)
  Receive Date: 20100616
  Receipt Date: 20100614
  Transmission Date: 20101027
  Serious: Yes (Life-Threatening, Hospitalization)
  Sender: FDA-Public Use
  Company Number: GB-TEVA-237732ISR

PATIENT
  Age: 74 Year
  Sex: Female

DRUGS (2)
  1. AMLODIPINE [Suspect]
     Route: 048
     Dates: start: 20100520, end: 20100603
  2. WARFARIN [Suspect]
     Indication: ATRIAL FIBRILLATION
     Route: 048

REACTIONS (5)
  - DRUG DISPENSING ERROR [None]
  - DRUG EFFECT INCREASED [None]
  - DYSPNOEA [None]
  - GASTROINTESTINAL HAEMORRHAGE [None]
  - INTERNATIONAL NORMALISED RATIO INCREASED [None]
